FAERS Safety Report 9844715 (Version 1)
Quarter: 2014Q1

REPORT INFORMATION
  Report Type: Spontaneous
  Country: US (occurrence: None)
  Receive Date: 20140122
  Receipt Date: 20140122
  Transmission Date: 20141002
  Serious: Yes (Death)
  Sender: FDA-Public Use
  Company Number: B0959199A

PATIENT
  Age: 53 Year
  Sex: Female

DRUGS (6)
  1. BUPROPION HYDROCHLORIDE [Suspect]
     Route: 048
  2. DOXEPIN [Suspect]
     Route: 048
  3. MUSCLE RELAXANT [Suspect]
     Route: 048
  4. HYDROMORPHONE HCL [Suspect]
     Route: 048
  5. BUSPIRONE [Suspect]
     Route: 048
  6. ALPRAZOLAM [Suspect]
     Route: 048

REACTIONS (1)
  - Completed suicide [None]
